FAERS Safety Report 8029441-0 (Version None)
Quarter: 2012Q1

REPORT INFORMATION
  Report Type: 
  Country: None (occurrence: None)
  Receive Date: 20120107
  Receipt Date: 20111214
  Transmission Date: 20120608
  Serious: No
  Sender: FDA-Public Use
  Company Number: US-ROXANE LABORATORIES, INC.-2011-RO-01830RO

PATIENT
  Sex: Female

DRUGS (2)
  1. RANITIDINE [Concomitant]
     Indication: GASTROOESOPHAGEAL REFLUX DISEASE
  2. OXCARBAZEPINE [Suspect]
     Indication: CONVULSION
     Dosage: 900 MG
     Route: 048

REACTIONS (4)
  - DYSPEPSIA [None]
  - ORAL DISCOMFORT [None]
  - LIP SWELLING [None]
  - SWOLLEN TONGUE [None]
